FAERS Safety Report 24295160 (Version 1)
Quarter: 2024Q3

REPORT INFORMATION
  Report Type: Spontaneous
  Country: BR (occurrence: BR)
  Receive Date: 20240907
  Receipt Date: 20240907
  Transmission Date: 20241017
  Serious: Yes (Death, Hospitalization, Other)
  Sender: TAKEDA
  Company Number: BR-TAKEDA-2024TUS088717

PATIENT
  Sex: Female

DRUGS (1)
  1. BRIGATINIB [Suspect]
     Active Substance: BRIGATINIB
     Indication: Product used for unknown indication
     Dosage: 180 MILLIGRAM, QD
     Route: 065

REACTIONS (4)
  - Death [Fatal]
  - Faeces discoloured [Unknown]
  - Anaemia [Unknown]
  - Pyrexia [Unknown]
